FAERS Safety Report 5725551-9 (Version None)
Quarter: 2008Q2

REPORT INFORMATION
  Report Type: 
  Country: None (occurrence: None)
  Receive Date: 20080501
  Receipt Date: 20080429
  Transmission Date: 20081010
  Serious: Yes (Death)
  Sender: FDA-Public Use
  Company Number: FR-ASTRAZENECA-2008CG00661

PATIENT
  Age: 25995 Day
  Sex: Female

DRUGS (5)
  1. DIPRIVAN [Suspect]
     Route: 042
     Dates: start: 20071226, end: 20071226
  2. PERFALGAN [Suspect]
     Route: 042
     Dates: end: 20071227
  3. MORPHINE [Suspect]
     Route: 042
  4. ULTIVA [Suspect]
     Dates: start: 20071226, end: 20071226
  5. DROLEPTAN [Suspect]
     Dates: start: 20071226, end: 20071226

REACTIONS (2)
  - APLASIA [None]
  - SEPTIC SHOCK [None]
